FAERS Safety Report 21757480 (Version 2)
Quarter: 2023Q1

REPORT INFORMATION
  Report Type: Spontaneous
  Country: US (occurrence: US)
  Receive Date: 20221221
  Receipt Date: 20230113
  Transmission Date: 20230417
  Serious: No
  Sender: FDA-Public Use
  Company Number: US-PHARMAESSENTIA CORPORATION-US-2022-PEC-000923

PATIENT

DRUGS (1)
  1. BESREMI [Suspect]
     Active Substance: ROPEGINTERFERON ALFA-2B-NJFT
     Indication: Essential thrombocythaemia
     Dosage: 100 MCG, Q2W
     Route: 058
     Dates: start: 20221103

REACTIONS (3)
  - Wrong dose [Unknown]
  - Off label use [Unknown]
  - Feeling abnormal [Unknown]
